FAERS Safety Report 25183326 (Version 1)
Quarter: 2025Q2

REPORT INFORMATION
  Report Type: Spontaneous
  Country: CN (occurrence: CN)
  Receive Date: 20250410
  Receipt Date: 20250410
  Transmission Date: 20250716
  Serious: Yes (Other)
  Sender: GE HEALTHCARE
  Company Number: CN-GE HEALTHCARE-2025CSU004178

PATIENT
  Age: 51 Year
  Sex: Female
  Weight: 82 kg

DRUGS (3)
  1. OMNIPAQUE [Suspect]
     Active Substance: IOHEXOL
     Indication: Angiocardiogram
     Route: 041
     Dates: start: 20250311, end: 20250311
  2. OMNIPAQUE [Suspect]
     Active Substance: IOHEXOL
     Indication: Stent placement
  3. OMNIPAQUE [Suspect]
     Active Substance: IOHEXOL
     Indication: Arterial angioplasty

REACTIONS (3)
  - Delirium [Recovered/Resolved]
  - Contrast encephalopathy [Recovered/Resolved]
  - Dysphoria [Recovered/Resolved]

NARRATIVE: CASE EVENT DATE: 20250311
